FAERS Safety Report 13020500 (Version 2)
Quarter: 2016Q4

REPORT INFORMATION
  Report Type: Spontaneous
  Country: BR (occurrence: BR)
  Receive Date: 20161212
  Receipt Date: 20161221
  Transmission Date: 20170207
  Serious: Yes (Other)
  Sender: FDA-Public Use
  Company Number: PHHY2016BR166485

PATIENT
  Sex: Female

DRUGS (2)
  1. HYDROCHLOORTHIAZIDE [Concomitant]
     Active Substance: HYDROCHLOROTHIAZIDE
     Indication: POLYURIA
     Dosage: 25 MG, UNK
     Route: 065
  2. VERAPAMIL [Suspect]
     Active Substance: VERAPAMIL HYDROCHLORIDE
     Indication: HYPERTENSION
     Dosage: 120 MG, BID
     Route: 048

REACTIONS (6)
  - Nausea [Recovering/Resolving]
  - Feeling abnormal [Recovering/Resolving]
  - Malaise [Not Recovered/Not Resolved]
  - Muscle tightness [Recovering/Resolving]
  - Blood pressure increased [Recovering/Resolving]
  - Somnolence [Not Recovered/Not Resolved]
